FAERS Safety Report 20582435 (Version 6)
Quarter: 2022Q2

REPORT INFORMATION
  Report Type: Spontaneous
  Country: CO (occurrence: CO)
  Receive Date: 20220311
  Receipt Date: 20220601
  Transmission Date: 20220721
  Serious: Yes (Other)
  Sender: FDA-Public Use
  Company Number: CO-BAYER-2022A035862

PATIENT
  Age: 29 Year
  Sex: Male

DRUGS (4)
  1. JIVI [Suspect]
     Active Substance: DAMOCTOCOG ALFA PEGOL
     Indication: Factor VIII deficiency
     Dosage: TREATMENT ON DEMAND AND INTERMITTENTLY
  2. JIVI [Suspect]
     Active Substance: DAMOCTOCOG ALFA PEGOL
     Indication: Factor VIII deficiency
     Dosage: 4000 IU, QD
     Route: 042
     Dates: start: 20220112
  3. JIVI [Suspect]
     Active Substance: DAMOCTOCOG ALFA PEGOL
     Indication: Factor VIII deficiency
     Dosage: 2000 IU, BID
     Route: 042
     Dates: start: 20220428
  4. JIVI [Suspect]
     Active Substance: DAMOCTOCOG ALFA PEGOL
     Indication: Factor VIII deficiency
     Dosage: UNK
     Route: 042
     Dates: start: 20220426, end: 20220426

REACTIONS (5)
  - Soft tissue haemorrhage [None]
  - Arthralgia [None]
  - Gait disturbance [None]
  - Arthralgia [None]
  - Haemarthrosis [None]

NARRATIVE: CASE EVENT DATE: 20220111
